FAERS Safety Report 5179621-7 (Version None)
Quarter: 2006Q4

REPORT INFORMATION
  Report Type: 
  Country: None (occurrence: None)
  Receive Date: 20061219
  Receipt Date: 20061004
  Transmission Date: 20070319
  Serious: Yes (Other)
  Sender: FDA-Public Use
  Company Number: US-ELI_LILLY_AND_COMPANY-US200610000991

PATIENT
  Age: 72 Year
  Sex: Female

DRUGS (8)
  1. FORTEO [Suspect]
     Indication: OSTEOPOROSIS
     Dosage: 20 UG, UNK
     Dates: start: 20060828, end: 20060831
  2. CYCLOSPORINE [Concomitant]
     Dosage: 100 MG, DAILY (1/D)
  3. PREDNISONE TAB [Concomitant]
     Dosage: 5 MG, DAILY (1/D)
  4. IMURAN [Concomitant]
     Dosage: 50 MG, DAILY (1/D)
  5. CATAPRES [Concomitant]
     Indication: BLOOD PRESSURE
     Dosage: .2 MG, WEEKLY (1/W)
     Route: 058
  6. ATENOLOL [Concomitant]
     Indication: BLOOD PRESSURE
     Dosage: 25 MG, DAILY (1/D)
  7. CALCIUM [Concomitant]
     Dosage: 1000 MG, DAILY (1/D)
  8. ACYCLOVIR [Concomitant]
     Indication: HERPES ZOSTER
     Dosage: 200 MG, DAILY (1/D)

REACTIONS (14)
  - BLOOD PRESSURE INCREASED [None]
  - CHEST PAIN [None]
  - FEAR [None]
  - FEELING ABNORMAL [None]
  - HEADACHE [None]
  - HYPERSENSITIVITY [None]
  - IMPAIRED WORK ABILITY [None]
  - INSOMNIA [None]
  - IRRITABILITY [None]
  - MUSCLE RIGIDITY [None]
  - MUSCLE SPASMS [None]
  - MUSCULOSKELETAL STIFFNESS [None]
  - PAIN [None]
  - PHARMACEUTICAL PRODUCT COMPLAINT [None]
